FAERS Safety Report 13707850 (Version 1)
Quarter: 2017Q2

REPORT INFORMATION
  Report Type: Spontaneous
  Country: US (occurrence: US)
  Receive Date: 20170630
  Receipt Date: 20170630
  Transmission Date: 20170830
  Serious: Yes (Other)
  Sender: FDA-Public Use
  Company Number: PHHY2017US092492

PATIENT
  Age: 64 Year
  Sex: Male

DRUGS (4)
  1. TPA [Concomitant]
     Active Substance: ALTEPLASE
     Indication: PULMONARY EMBOLISM
     Dosage: 0.5 MG/H, UNK
     Route: 065
  2. HEPARIN [Suspect]
     Active Substance: HEPARIN SODIUM
     Indication: PULMONARY EMBOLISM
     Dosage: 500 IU/H, UNK
     Route: 065
  3. VASOPRESSIN. [Concomitant]
     Active Substance: VASOPRESSIN
     Indication: VENTRICULAR TACHYCARDIA
     Route: 065
  4. NITRIC OXIDE. [Concomitant]
     Active Substance: NITRIC OXIDE
     Indication: PULMONARY EMBOLISM
     Dosage: 10 PPM
     Route: 065

REACTIONS (4)
  - Haemorrhage [Recovering/Resolving]
  - Abdominal compartment syndrome [Recovering/Resolving]
  - Abdominal distension [Recovering/Resolving]
  - Liver injury [Recovering/Resolving]
